FAERS Safety Report 18666801 (Version 1)
Quarter: 2020Q4

REPORT INFORMATION
  Report Type: Spontaneous
  Country: MY (occurrence: MY)
  Receive Date: 20201227
  Receipt Date: 20201227
  Transmission Date: 20210114
  Serious: Yes (Other)
  Sender: FDA-Public Use
  Company Number: MY-SUN PHARMACEUTICAL INDUSTRIES LTD-2020R1-272098

PATIENT
  Age: 77 Year
  Sex: Male

DRUGS (1)
  1. ROZIDAL [Suspect]
     Active Substance: RISPERIDONE
     Indication: SCHIZOPHRENIA
     Dosage: 1 MILLIGRAM, DAILY
     Route: 048

REACTIONS (1)
  - Ileus paralytic [Recovering/Resolving]
